FAERS Safety Report 24313957 (Version 1)
Quarter: 2024Q3

REPORT INFORMATION
  Report Type: Other
  Country: US (occurrence: US)
  Receive Date: 20240912
  Receipt Date: 20240912
  Transmission Date: 20241016
  Serious: No
  Sender: SIGMA TAU
  Company Number: US-LEADIANT BIOSCIENCES, INC.-2024STPI000006

PATIENT
  Sex: Male

DRUGS (1)
  1. MATULANE [Suspect]
     Active Substance: PROCARBAZINE HYDROCHLORIDE
     Indication: Hodgkin^s disease mixed cellularity stage III
     Dosage: 50 MILLIGRAMS, 4 CAPSULES (200 MG TOTAL) DAILY ON DAYS 1-7 OF EACH 28 DAY CYCLE ( CYCLE 3-8)
     Route: 048
     Dates: start: 20230808

REACTIONS (2)
  - Dizziness [Unknown]
  - Syncope [Unknown]
